FAERS Safety Report 4348651-7 (Version None)
Quarter: 2004Q2

REPORT INFORMATION
  Report Type: 
  Country: None (occurrence: None)
  Receive Date: 20040423
  Receipt Date: 20040413
  Transmission Date: 20050107
  Serious: Yes (Hospitalization)
  Sender: FDA-Public Use
  Company Number: IT-JNJFOC-20040403256

PATIENT
  Age: 67 Year
  Sex: Male

DRUGS (6)
  1. SPORANOX [Suspect]
     Indication: FUNGAL INFECTION
     Dosage: 200 MG, 1 IN 1 DAY, ORAL
     Route: 048
     Dates: start: 20040324, end: 20040327
  2. RAMIPRIL [Concomitant]
  3. LACIREX (LACIDIPINE) [Concomitant]
  4. ASPIRIN [Concomitant]
  5. ACTRAPID (INSULIN HUMAN) [Concomitant]
  6. PROTOPHANE (INSULIN HUMAN INJECTION, ISOPHANE) [Concomitant]

REACTIONS (3)
  - FACE OEDEMA [None]
  - OEDEMA PERIPHERAL [None]
  - WEIGHT INCREASED [None]
